FAERS Safety Report 8953763 (Version 1)
Quarter: 2012Q4

REPORT INFORMATION
  Report Type: 
  Country: US (occurrence: US)
  Receive Date: 20121206
  Receipt Date: 20121206
  Transmission Date: 20130627
  Serious: Yes (Life-Threatening, Hospitalization)
  Sender: FDA-Public Use
  Company Number: US-ROXANE LABORATORIES, INC.-2012-RO-02507RO

PATIENT
  Age: 34 Year
  Sex: Female

DRUGS (4)
  1. ZOLPIDEM [Suspect]
     Dosage: 600 mg
  2. OXYCODONE [Suspect]
     Dosage: 1350 mg
  3. LORAZEPAM [Suspect]
     Dosage: 120 mg
  4. FENTANYL [Suspect]
     Route: 062

REACTIONS (2)
  - Overdose [Recovered/Resolved]
  - Stress cardiomyopathy [Recovered/Resolved]
